FAERS Safety Report 7273548-2 (Version None)
Quarter: 2011Q1

REPORT INFORMATION
  Report Type: 
  Country: None (occurrence: None)
  Receive Date: 20110203
  Receipt Date: 20101012
  Transmission Date: 20110831
  Serious: No
  Sender: FDA-Public Use
  Company Number: US-ABBOTT-10P-163-0665252-00

PATIENT
  Sex: Female
  Weight: 59.02 kg

DRUGS (15)
  1. LEVOXYL [Suspect]
     Indication: PRODUCT USED FOR UNKNOWN INDICATION
     Dates: start: 20100616, end: 20100619
  2. TOPAMAX [Suspect]
     Indication: PRODUCT USED FOR UNKNOWN INDICATION
     Dates: start: 20100731
  3. TYLENOL-500 [Concomitant]
     Indication: PRODUCT USED FOR UNKNOWN INDICATION
  4. LEVOTHYROXINE [Concomitant]
     Indication: THYROIDECTOMY
     Dates: start: 20100408, end: 20100420
  5. SYNTHROID [Suspect]
     Dates: start: 20100501, end: 20101006
  6. SYNTHROID [Suspect]
     Indication: THYROID CANCER
     Dates: start: 20100101, end: 20100407
  7. SYNTHROID [Suspect]
     Indication: THYROIDECTOMY
     Dates: start: 20100518, end: 20100615
  8. TOPAMAX [Suspect]
  9. CITRICAL CALCIUM [Concomitant]
     Indication: PRODUCT USED FOR UNKNOWN INDICATION
  10. VICODIN [Concomitant]
     Indication: PRODUCT USED FOR UNKNOWN INDICATION
  11. SYNTHROID [Suspect]
     Indication: NEOPLASM PROPHYLAXIS
     Dates: start: 20100421, end: 20100517
  12. TOPAMAX [Suspect]
  13. SYNTHROID [Suspect]
     Dates: start: 20100616, end: 20100622
  14. MULTI-VITAMIN [Concomitant]
     Indication: PRODUCT USED FOR UNKNOWN INDICATION
  15. MOTRIN [Concomitant]
     Indication: PRODUCT USED FOR UNKNOWN INDICATION

REACTIONS (9)
  - DIZZINESS [None]
  - TINNITUS [None]
  - PALPITATIONS [None]
  - VERTIGO [None]
  - MIGRAINE [None]
  - DRUG EFFECT INCREASED [None]
  - HEADACHE [None]
  - DRY EYE [None]
  - VISUAL IMPAIRMENT [None]
